FAERS Safety Report 5169063-2 (Version None)
Quarter: 2006Q4

REPORT INFORMATION
  Report Type: 
  Country: None (occurrence: None)
  Receive Date: 20061211
  Receipt Date: 20061109
  Transmission Date: 20070319
  Serious: Yes (Other)
  Sender: FDA-Public Use
  Company Number: SE-ROCHE-470506

PATIENT
  Age: 39 Year
  Sex: Male

DRUGS (3)
  1. CELLCEPT [Suspect]
     Indication: DRUG USE FOR UNKNOWN INDICATION
     Route: 048
     Dates: start: 19990608, end: 20030507
  2. ENTOCORT [Concomitant]
     Dosage: FORM: PROLONGED RELEASE CAPSULES
  3. PREDNISOLONE [Concomitant]

REACTIONS (3)
  - FLUSHING [None]
  - LARYNGEAL OEDEMA [None]
  - THROAT TIGHTNESS [None]
